FAERS Safety Report 10518487 (Version 1)
Quarter: 2014Q4

REPORT INFORMATION
  Report Type: Spontaneous
  Country: US (occurrence: None)
  Receive Date: 20141014
  Receipt Date: 20141014
  Transmission Date: 20150528
  Serious: Yes (Death, Hospitalization)
  Sender: FDA-Public Use
  Company Number: None

PATIENT
  Age: 73 Year
  Sex: Female
  Weight: 81.65 kg

DRUGS (1)
  1. COUMADIN [Suspect]
     Active Substance: WARFARIN SODIUM
     Indication: THROMBOSIS
     Dates: start: 20120710, end: 20121112

REACTIONS (4)
  - Toxicity to various agents [None]
  - Rectal haemorrhage [None]
  - Haematuria [None]
  - Vaginal haemorrhage [None]

NARRATIVE: CASE EVENT DATE: 20121112
